FAERS Safety Report 7729933-5 (Version None)
Quarter: 2011Q3

REPORT INFORMATION
  Report Type: 
  Country: None (occurrence: None)
  Receive Date: 20110906
  Receipt Date: 20110823
  Transmission Date: 20111222
  Serious: Yes (Hospitalization, Other)
  Sender: FDA-Public Use
  Company Number: PHHY2011FR65378

PATIENT
  Sex: Female

DRUGS (10)
  1. MEDROL [Concomitant]
     Dosage: 8 MG, UNK
  2. DOXYCYCLINE [Concomitant]
     Dosage: UNK UKN, UNK
  3. CALCIUM CARBONATE [Concomitant]
     Dosage: BID
  4. VALSARTAN [Suspect]
     Dosage: 1 DF, QD
     Route: 048
     Dates: end: 20110527
  5. OMEPRAZOLE [Suspect]
     Dosage: 1 DF, QD
     Route: 048
     Dates: end: 20110527
  6. ATORVASTATIN CALCIUM [Suspect]
     Dosage: 1 DF, QD
     Route: 048
     Dates: end: 20110527
  7. TARCEVA [Concomitant]
     Dosage: 75 MG, DAILY
  8. DIAMICRON [Suspect]
     Dosage: UNK UKN, UNK
     Route: 048
     Dates: end: 20110527
  9. POTASSIUM CHLORIDE [Concomitant]
     Dosage: BID
  10. TENORMIN [Concomitant]
     Dosage: UNK UKN, UNK

REACTIONS (5)
  - GENERAL PHYSICAL HEALTH DETERIORATION [None]
  - CYTOLYTIC HEPATITIS [None]
  - METASTASES TO HEART [None]
  - OEDEMA PERIPHERAL [None]
  - ORAL CANDIDIASIS [None]
